FAERS Safety Report 4552674-2 (Version None)
Quarter: 2005Q1

REPORT INFORMATION
  Report Type: 
  Country: None (occurrence: None)
  Receive Date: 20050114
  Receipt Date: 20050105
  Transmission Date: 20050727
  Serious: Yes (Other)
  Sender: FDA-Public Use
  Company Number: PHNU2005DE00467

PATIENT
  Age: 54 Year
  Sex: Male

DRUGS (1)
  1. SANDIMMUNE [Suspect]

REACTIONS (1)
  - BLINDNESS [None]
